FAERS Safety Report 5272190-2 (Version None)
Quarter: 2007Q1

REPORT INFORMATION
  Report Type: 
  Country: None (occurrence: None)
  Receive Date: 20070320
  Receipt Date: 20070320
  Transmission Date: 20070707
  Serious: Yes (Life-Threatening, Other)
  Sender: FDA-Public Use
  Company Number: None

PATIENT
  Age: 24 Year
  Sex: Male
  Weight: 72.5755 kg

DRUGS (4)
  1. RISPERDAL [Suspect]
     Indication: BIPOLAR I DISORDER
     Dosage: TO MUCH MONTHLY INTRAMUSCULAR
     Route: 030
     Dates: start: 20040101, end: 20060101
  2. RISPERDAL [Suspect]
     Indication: SCHIZOAFFECTIVE DISORDER
     Dosage: TO MUCH MONTHLY INTRAMUSCULAR
     Route: 030
     Dates: start: 20040101, end: 20060101
  3. RISPERDAL [Suspect]
     Indication: BIPOLAR I DISORDER
     Dosage: TO MUCH MONTHLY INTRAMUSCULAR
     Route: 030
     Dates: start: 20040101, end: 20060101
  4. RISPERDAL [Suspect]
     Indication: SCHIZOAFFECTIVE DISORDER
     Dosage: TO MUCH MONTHLY INTRAMUSCULAR
     Route: 030
     Dates: start: 20040101, end: 20060101

REACTIONS (5)
  - CONSTIPATION [None]
  - DYSPNOEA [None]
  - DYSURIA [None]
  - SPEECH DISORDER [None]
  - SURGERY [None]
